FAERS Safety Report 4302124-6 (Version None)
Quarter: 2004Q1

REPORT INFORMATION
  Report Type: 
  Country: None (occurrence: None)
  Receive Date: 20040220
  Receipt Date: 20031217
  Transmission Date: 20041129
  Serious: Yes (Hospitalization, Other)
  Sender: FDA-Public Use
  Company Number: CIP03002973

PATIENT
  Age: 31 Year
  Sex: Female

DRUGS (9)
  1. DIDRONEL [Suspect]
     Indication: OSTEOPOROSIS
     Dosage: 200 MG DAILY, ORAL
     Route: 048
     Dates: start: 20031001, end: 20031014
  2. PERDONINE (PREDNISOLONE) [Concomitant]
  3. BUFFERIN (MAGNESIUM CARBONATE, ALUMINIUM GLUCINTE, ACETYLSALICYLIC ACI [Concomitant]
  4. ULCERMIN (SUCRALFATE) [Concomitant]
  5. ONE-ALPHA (ALFACALCIDOL) [Concomitant]
  6. NIZATIDINE [Concomitant]
  7. LASIX [Concomitant]
  8. PROCYLIN (BERAPROST SODIUM) [Concomitant]
  9. FERROMIA (FERROUS CITRATE) [Concomitant]

REACTIONS (16)
  - ALANINE AMINOTRANSFERASE INCREASED [None]
  - ASPARTATE AMINOTRANSFERASE INCREASED [None]
  - BLOOD BILIRUBIN UNCONJUGATED INCREASED [None]
  - BLOOD CHOLESTEROL DECREASED [None]
  - BLOOD TRIGLYCERIDES INCREASED [None]
  - CONDITION AGGRAVATED [None]
  - DEPRESSED LEVEL OF CONSCIOUSNESS [None]
  - HAEMOLYTIC ANAEMIA [None]
  - LYMPHOCYTE COUNT DECREASED [None]
  - MALAISE [None]
  - NEUTROPHIL COUNT INCREASED [None]
  - PETECHIAE [None]
  - PULMONARY HYPERTENSION [None]
  - SYSTEMIC LUPUS ERYTHEMATOSUS [None]
  - THROMBOCYTOPENIC PURPURA [None]
  - THROMBOTIC THROMBOCYTOPENIC PURPURA [None]
